FAERS Safety Report 14714200 (Version 1)
Quarter: 2018Q2

REPORT INFORMATION
  Report Type: Spontaneous
  Country: TR (occurrence: TR)
  Receive Date: 20180404
  Receipt Date: 20180404
  Transmission Date: 20180711
  Serious: Yes (Other)
  Sender: FDA-Public Use
  Company Number: TR-JNJFOC-20180344884

PATIENT
  Age: 38 Year
  Sex: Male

DRUGS (2)
  1. NAPROSYN [Concomitant]
     Active Substance: NAPROXEN
     Route: 065
  2. SIMPONI [Suspect]
     Active Substance: GOLIMUMAB
     Indication: ANKYLOSING SPONDYLITIS
     Route: 058
     Dates: start: 201708, end: 201802

REACTIONS (2)
  - Pulmonary tuberculosis [Unknown]
  - Influenza [Unknown]

NARRATIVE: CASE EVENT DATE: 20180329
